FAERS Safety Report 17141306 (Version 1)
Quarter: 2019Q4

REPORT INFORMATION
  Report Type: Spontaneous
  Country: ES (occurrence: ES)
  Receive Date: 20191211
  Receipt Date: 20191211
  Transmission Date: 20200122
  Serious: Yes (Other)
  Sender: FDA-Public Use
  Company Number: ES-PFIZER INC-2019531934

PATIENT
  Age: 58 Year
  Sex: Female
  Weight: 70 kg

DRUGS (1)
  1. DUAVIVE [Suspect]
     Active Substance: BAZEDOXIFENE ACETATE\ESTROGENS, CONJUGATED
     Indication: MENOPAUSAL SYMPTOMS
     Dosage: UNK
     Route: 048
     Dates: start: 20190515

REACTIONS (1)
  - Androgenetic alopecia [Not Recovered/Not Resolved]

NARRATIVE: CASE EVENT DATE: 20190901
